FAERS Safety Report 7760694-X (Version None)
Quarter: 2011Q3

REPORT INFORMATION
  Report Type: 
  Country: None (occurrence: None)
  Receive Date: 20110919
  Receipt Date: 20110909
  Transmission Date: 20111222
  Serious: Yes (Hospitalization)
  Sender: FDA-Public Use
  Company Number: US-ASTRAZENECA-2011SE54490

PATIENT
  Age: 68 Year
  Sex: Female

DRUGS (7)
  1. VIATIA [Concomitant]
  2. SIMVASTATIN [Concomitant]
  3. OMEPRAZOLE [Suspect]
     Route: 048
  4. PRILOSEC OTC [Suspect]
     Route: 048
     Dates: start: 20110711, end: 20110807
  5. COREG [Concomitant]
  6. FERROUS SULFATE TAB [Concomitant]
     Indication: ANAEMIA
  7. AMORIL [Concomitant]

REACTIONS (9)
  - MALAISE [None]
  - FATIGUE [None]
  - ANAEMIA [None]
  - DIARRHOEA [None]
  - RENAL FAILURE [None]
  - EATING DISORDER [None]
  - VOMITING [None]
  - DECREASED APPETITE [None]
  - URINARY TRACT INFECTION [None]
